FAERS Safety Report 13141260 (Version 2)
Quarter: 2017Q1

REPORT INFORMATION
  Report Type: Spontaneous
  Country: US (occurrence: US)
  Receive Date: 20170123
  Receipt Date: 20170127
  Transmission Date: 20170428
  Serious: No
  Sender: FDA-Public Use
  Company Number: US-UNITED THERAPEUTICS-UNT-2016-018003

PATIENT
  Age: 50 Year
  Sex: Female
  Weight: 100 kg

DRUGS (6)
  1. REMODULIN [Suspect]
     Active Substance: TREPROSTINIL
     Indication: PULMONARY ARTERIAL HYPERTENSION
     Dosage: 0.002 ?G/KG, CONTINUING
     Route: 058
     Dates: start: 20161118
  2. REMODULIN [Suspect]
     Active Substance: TREPROSTINIL
     Dosage: 0.006 ?G/KG, CONTINUING
     Route: 058
  3. REMODULIN [Suspect]
     Active Substance: TREPROSTINIL
     Dosage: 0.010 ?G/KG, CONTINUING
     Route: 058
  4. DILTIAZEM. [Concomitant]
     Active Substance: DILTIAZEM
     Indication: PRODUCT USED FOR UNKNOWN INDICATION
  5. REMODULIN [Suspect]
     Active Substance: TREPROSTINIL
     Dosage: 0.004 ?G/KG, CONTINUING
     Route: 058
  6. LETAIRIS [Concomitant]
     Active Substance: AMBRISENTAN
     Indication: PRODUCT USED FOR UNKNOWN INDICATION

REACTIONS (13)
  - Nausea [Not Recovered/Not Resolved]
  - Muscular weakness [Unknown]
  - Pain in jaw [Not Recovered/Not Resolved]
  - Weight fluctuation [Unknown]
  - Asthenia [Unknown]
  - Hypotension [Unknown]
  - Crying [Unknown]
  - Headache [Not Recovered/Not Resolved]
  - Anxiety [Unknown]
  - Vomiting [Not Recovered/Not Resolved]
  - Musculoskeletal pain [Recovered/Resolved]
  - Palpitations [Unknown]
  - Pain [Recovered/Resolved]

NARRATIVE: CASE EVENT DATE: 201611
